FAERS Safety Report 17374073 (Version 1)
Quarter: 2020Q1

REPORT INFORMATION
  Report Type: Spontaneous
  Country: BR (occurrence: BR)
  Receive Date: 20200206
  Receipt Date: 20200206
  Transmission Date: 20200409
  Serious: Yes (Other)
  Sender: FDA-Public Use
  Company Number: BR-AMGEN-BRASP2020017326

PATIENT
  Age: 78 Year
  Sex: Female

DRUGS (9)
  1. ENDOFOLIN [Concomitant]
     Active Substance: FOLIC ACID
     Dosage: UNK
  2. PROLIA [Suspect]
     Active Substance: DENOSUMAB
     Indication: OSTEOPOROSIS
     Dosage: UNK, Q6MO
     Route: 065
  3. ESOMEX [Concomitant]
     Active Substance: ESOMEPRAZOLE MAGNESIUM
     Dosage: UNK
  4. LUFTAL [Concomitant]
     Active Substance: DIMETHICONE
     Dosage: UNK
  5. CODATEN [Concomitant]
     Active Substance: CODEINE PHOSPHATE\DICLOFENAC SODIUM
     Dosage: UNK
  6. XARELTO [Concomitant]
     Active Substance: RIVAROXABAN
     Dosage: UNK
  7. VENALOT [Concomitant]
     Active Substance: COUMARIN\TROXERUTIN
     Dosage: UNK
  8. EXODUS [Concomitant]
     Indication: DEPRESSION
     Dosage: UNK
  9. EXODUS [Concomitant]
     Indication: SLEEP DISORDER

REACTIONS (6)
  - Foot fracture [Unknown]
  - Malaise [Unknown]
  - Insomnia [Unknown]
  - Dengue fever [Unknown]
  - Blood pressure fluctuation [Unknown]
  - Thrombosis [Unknown]

NARRATIVE: CASE EVENT DATE: 2019
